FAERS Safety Report 18010793 (Version 1)
Quarter: 2020Q3

REPORT INFORMATION
  Report Type: Spontaneous
  Country: DE (occurrence: DE)
  Receive Date: 20200710
  Receipt Date: 20200710
  Transmission Date: 20201103
  Serious: Yes (Disabling)
  Sender: FDA-Public Use
  Company Number: DE-ANIPHARMA-2020-DE-000148

PATIENT
  Age: 73 Year
  Sex: Male
  Weight: 110 kg

DRUGS (4)
  1. BICALUTAMIDE. [Suspect]
     Active Substance: BICALUTAMIDE
     Indication: PROSTATE CANCER
     Dosage: 150 MG UNK / 50 MG UNK
     Route: 048
     Dates: start: 202005
  2. EBRANTIL [Concomitant]
     Active Substance: URAPIDIL
     Dosage: FOR QUITE SOME TIME NOW
     Route: 065
  3. VALSACOR [Concomitant]
     Active Substance: VALSARTAN
     Dosage: FOR QUITE SOME TIME NOW
     Route: 004
  4. PAMORELIN [Suspect]
     Active Substance: TRIPTORELIN PAMOATE
     Dosage: 3.75 MG MONTH
     Route: 065
     Dates: start: 2020

REACTIONS (4)
  - Off label use [Recovered/Resolved]
  - Drug ineffective [Unknown]
  - Spinal disorder [Not Recovered/Not Resolved]
  - Back pain [Recovered/Resolved with Sequelae]

NARRATIVE: CASE EVENT DATE: 201709
